FAERS Safety Report 11909760 (Version 1)
Quarter: 2016Q1

REPORT INFORMATION
  Report Type: Spontaneous
  Country: US (occurrence: None)
  Receive Date: 20160111
  Receipt Date: 20160111
  Transmission Date: 20160526
  Serious: Yes (Life-Threatening, Hospitalization, Other)
  Sender: FDA-Public Use
  Company Number: None

PATIENT
  Age: 11 Year
  Sex: Female
  Weight: 47.17 kg

DRUGS (2)
  1. NUEDEXTA [Suspect]
     Active Substance: DEXTROMETHORPHAN HYDROBROMIDE\QUINIDINE SULFATE
     Indication: BIPOLAR DISORDER
     Route: 048
     Dates: start: 20151217
  2. RISPERIDONE 1 MG AND 2 MG AJANJA PHARMACEUTICALS [Suspect]
     Active Substance: RISPERIDONE
     Indication: BIPOLAR DISORDER
     Dosage: MORNING FOR 3 PM
     Route: 048
     Dates: start: 20160104

REACTIONS (1)
  - Lethargy [None]

NARRATIVE: CASE EVENT DATE: 20160104
